FAERS Safety Report 5790070-0 (Version None)
Quarter: 2008Q2

REPORT INFORMATION
  Report Type: 
  Country: None (occurrence: None)
  Receive Date: 20080626
  Receipt Date: 20080512
  Transmission Date: 20081010
  Serious: No
  Sender: FDA-Public Use
  Company Number: A0670362A

PATIENT
  Age: 23 Year
  Sex: Female
  Weight: 84 kg

DRUGS (1)
  1. ALLI [Suspect]
     Indication: WEIGHT LOSS DIET
     Dates: start: 20070623

REACTIONS (27)
  - ABDOMINAL DISCOMFORT [None]
  - ABDOMINAL DISTENSION [None]
  - ADVERSE EVENT [None]
  - ANOREXIA [None]
  - CONSTIPATION [None]
  - DECREASED APPETITE [None]
  - DIARRHOEA [None]
  - FLATULENCE [None]
  - FLUID RETENTION [None]
  - GASTROENTERITIS VIRAL [None]
  - GASTROINTESTINAL DISORDER [None]
  - HANGOVER [None]
  - HEADACHE [None]
  - HUNGER [None]
  - INFLUENZA [None]
  - LIPIDURIA [None]
  - MALAISE [None]
  - MENSTRUAL DISORDER [None]
  - MIGRAINE [None]
  - MUSCLE SPASMS [None]
  - PALLOR [None]
  - RECTAL DISCHARGE [None]
  - STEATORRHOEA [None]
  - SWELLING FACE [None]
  - THERAPEUTIC RESPONSE UNEXPECTED [None]
  - TREMOR [None]
  - WEIGHT FLUCTUATION [None]
